FAERS Safety Report 25990329 (Version 1)
Quarter: 2025Q4

REPORT INFORMATION
  Report Type: Spontaneous
  Country: CL (occurrence: CL)
  Receive Date: 20251103
  Receipt Date: 20251103
  Transmission Date: 20260117
  Serious: Yes (Other)
  Sender: PFIZER
  Company Number: CL-PFIZER INC-PV202500128008

PATIENT
  Age: 63 Year
  Sex: Female

DRUGS (25)
  1. IBRANCE [Suspect]
     Active Substance: PALBOCICLIB
     Dosage: 75 MG, DAILY (CYCLE 37)
     Route: 048
     Dates: start: 20231229, end: 20240126
  2. IBRANCE [Suspect]
     Active Substance: PALBOCICLIB
     Dosage: UNK, CYCLE 38
     Dates: start: 20240205, end: 20240305
  3. IBRANCE [Suspect]
     Active Substance: PALBOCICLIB
     Dosage: UNK, CYCLE 39
     Dates: start: 20240308, end: 20240416
  4. IBRANCE [Suspect]
     Active Substance: PALBOCICLIB
     Dosage: UNK, CYCLE 40
     Dates: start: 20240308, end: 20240416
  5. IBRANCE [Suspect]
     Active Substance: PALBOCICLIB
     Dosage: UNK, CYCLE 41
     Dates: start: 20240525, end: 20240614
  6. IBRANCE [Suspect]
     Active Substance: PALBOCICLIB
     Dosage: UNK, CYCLE 42
     Dates: start: 20240612
  7. IBRANCE [Suspect]
     Active Substance: PALBOCICLIB
     Dosage: UNK
     Dates: start: 20240625, end: 20240716
  8. IBRANCE [Suspect]
     Active Substance: PALBOCICLIB
     Dosage: UNK, CYCLE 43
     Dates: start: 20240729
  9. LETROZOLE [Concomitant]
     Active Substance: LETROZOLE
     Dosage: 2.5 MG, DAILY
     Route: 048
     Dates: start: 20231229, end: 20240126
  10. LETROZOLE [Concomitant]
     Active Substance: LETROZOLE
     Dosage: UNK, CYCLE 38
     Dates: start: 20240205, end: 20240305
  11. LETROZOLE [Concomitant]
     Active Substance: LETROZOLE
     Dosage: UNK, CYCLE 39
     Dates: start: 20240308, end: 20240416
  12. LETROZOLE [Concomitant]
     Active Substance: LETROZOLE
     Dosage: UNK, CYCLE 40
     Dates: start: 20240308, end: 20240416
  13. LETROZOLE [Concomitant]
     Active Substance: LETROZOLE
     Dosage: UNK, CYCLE 41
     Dates: start: 20240525, end: 20240614
  14. LETROZOLE [Concomitant]
     Active Substance: LETROZOLE
     Dosage: UNK, CYCLE 42
     Dates: start: 20240612
  15. LETROZOLE [Concomitant]
     Active Substance: LETROZOLE
     Dosage: UNK
     Dates: start: 20240625, end: 20240716
  16. OMEPRAZOLE [Concomitant]
     Active Substance: OMEPRAZOLE
     Dosage: 20 MG, DAILY
     Route: 048
  17. FLAPEX E [Concomitant]
     Dosage: UNK
     Route: 048
  18. LOSARTAN [Concomitant]
     Active Substance: LOSARTAN
     Dosage: 25 MG, 2X/DAY
  19. CARVEDILOL [Concomitant]
     Active Substance: CARVEDILOL
     Dosage: UNK, 6.25
  20. SPIRONOLACTONE [Concomitant]
     Active Substance: SPIRONOLACTONE
     Dosage: 25 MG, DAILY
  21. ASPIRIN [Concomitant]
     Active Substance: ASPIRIN
     Dosage: 100 MG, DAILY
  22. LANSOPRAZOLE [Concomitant]
     Active Substance: LANSOPRAZOLE
     Dosage: 30 MG, DAILY
  23. ERVASTIN [Concomitant]
     Dosage: UNK, DAILY
  24. DAPAGLIFLOZIN [Concomitant]
     Active Substance: DAPAGLIFLOZIN
     Dosage: 10 MG, DAILY
  25. INFLUENZA VIRUS VACCINE [Concomitant]
     Active Substance: INFLUENZA VIRUS VACCINE
     Indication: Immunisation
     Dosage: DOSE NUMBER UNKNOWN, SINGLE

REACTIONS (12)
  - Respiratory disorder [Unknown]
  - Pericardial fibrosis [Unknown]
  - Syncope [Unknown]
  - Arthropathy [Unknown]
  - Headache [Unknown]
  - Nausea [Unknown]
  - Systolic dysfunction [Unknown]
  - Diastolic dysfunction [Unknown]
  - Arteriosclerosis [Unknown]
  - Hiatus hernia [Unknown]
  - Diverticulum intestinal [Unknown]
  - Renal cyst [Unknown]

NARRATIVE: CASE EVENT DATE: 20240406
